FAERS Safety Report 7082322-1 (Version None)
Quarter: 2010Q4

REPORT INFORMATION
  Report Type: 
  Country: None (occurrence: None)
  Receive Date: 20101104
  Receipt Date: 20101027
  Transmission Date: 20110411
  Serious: Yes (Hospitalization)
  Sender: FDA-Public Use
  Company Number: US-BIOGENIDEC-2010BI014365

PATIENT
  Sex: Female

DRUGS (1)
  1. TYSABRI [Suspect]
     Indication: MULTIPLE SCLEROSIS
     Route: 042
     Dates: start: 20070207

REACTIONS (6)
  - CONFUSIONAL STATE [None]
  - EMPHYSEMA [None]
  - PNEUMONIA [None]
  - PYREXIA [None]
  - SPEECH DISORDER [None]
  - VOMITING [None]
